FAERS Safety Report 6848876-2 (Version None)
Quarter: 2010Q3

REPORT INFORMATION
  Report Type: 
  Country: None (occurrence: None)
  Receive Date: 20100716
  Receipt Date: 20070919
  Transmission Date: 20110219
  Serious: No
  Sender: FDA-Public Use
  Company Number: US-PFIZER INC-2007075047

PATIENT
  Sex: Female
  Weight: 61.8 kg

DRUGS (7)
  1. CHANTIX [Suspect]
     Indication: SMOKING CESSATION THERAPY
     Dates: start: 20061214
  2. VALSARTAN [Concomitant]
     Indication: HYPERTENSION
  3. ZETIA [Concomitant]
     Indication: BLOOD CHOLESTEROL INCREASED
  4. MONTELUKAST SODIUM [Concomitant]
     Indication: ASTHMA
  5. MONTELUKAST SODIUM [Concomitant]
     Indication: EMPHYSEMA
  6. ADVAIR DISKUS 100/50 [Concomitant]
     Indication: ASTHMA
     Route: 055
  7. SPIRIVA [Concomitant]
     Indication: ASTHMA
     Route: 055

REACTIONS (2)
  - NAUSEA [None]
  - VOMITING [None]
